FAERS Safety Report 5361469-1 (Version None)
Quarter: 2007Q2

REPORT INFORMATION
  Report Type: 
  Country: None (occurrence: None)
  Receive Date: 20070619
  Receipt Date: 20070613
  Transmission Date: 20071010
  Serious: Yes (Disabling)
  Sender: FDA-Public Use
  Company Number: JP-SP-2007-02101

PATIENT
  Age: 51 Year
  Sex: Male

DRUGS (1)
  1. IMMUCYST [Suspect]
     Indication: BLADDER CANCER
     Dosage: 81 MG / 40.5 MG
     Route: 043
     Dates: start: 20040824

REACTIONS (5)
  - CONTRACTED BLADDER [None]
  - DYSURIA [None]
  - INCORRECT DRUG DOSAGE FORM ADMINISTERED [None]
  - POLLAKIURIA [None]
  - URGE INCONTINENCE [None]
